FAERS Safety Report 4870355-2 (Version None)
Quarter: 2006Q1

REPORT INFORMATION
  Report Type: 
  Country: None (occurrence: None)
  Receive Date: 20060103
  Receipt Date: 20051020
  Transmission Date: 20060701
  Serious: Yes (Hospitalization)
  Sender: FDA-Public Use
  Company Number: US-BOEHRINGER INGELHEIM PHARMACEUTICALS, INC.-2005-BP-18632BP

PATIENT
  Sex: Female

DRUGS (8)
  1. MOBIC [Suspect]
     Indication: INTERVERTEBRAL DISC PROTRUSION
     Route: 048
     Dates: start: 20050801, end: 20050901
  2. MOBIC [Suspect]
     Indication: SCIATICA
  3. MOBIC [Suspect]
     Indication: ACCIDENT
  4. DIOVAN [Concomitant]
     Indication: HYPERTENSION
  5. ASPIRIN [Concomitant]
  6. VITAMIN PILL [Concomitant]
     Indication: VITAMIN SUPPLEMENTATION
  7. NEXIUM [Concomitant]
  8. SPIRONOLACTONE [Concomitant]
     Indication: BLOOD PRESSURE

REACTIONS (8)
  - BLOOD PRESSURE FLUCTUATION [None]
  - CHILLS [None]
  - CONFUSIONAL STATE [None]
  - DIZZINESS [None]
  - HYPONATRAEMIA [None]
  - MEMORY IMPAIRMENT [None]
  - RASH [None]
  - VISION BLURRED [None]
